FAERS Safety Report 4379257-1 (Version None)
Quarter: 2004Q2

REPORT INFORMATION
  Report Type: 
  Country: None (occurrence: None)
  Receive Date: 20040610
  Receipt Date: 20040602
  Transmission Date: 20050107
  Serious: Yes (Hospitalization)
  Sender: FDA-Public Use
  Company Number: STA-AE-04-MTX-037

PATIENT
  Age: 32 Year
  Sex: Female

DRUGS (7)
  1. METHOTREXATE [Suspect]
     Indication: RHEUMATOID ARTHRITIS
     Dosage: 2.5 MG SIX EVERY SATURDAY
     Dates: start: 20030429
  2. ENBREL (ETANERCEPT, INJECTION) [Suspect]
     Indication: RHEUMATOID ARTHRITIS
     Dosage: 25MG 2X PER 1 WK, SC
     Route: 058
     Dates: start: 20030429, end: 20030511
  3. PREDNISONE TAB [Concomitant]
  4. VICODIN [Concomitant]
  5. AMOXICILLIN [Concomitant]
  6. ORTHO TRI-CYCLEN [Concomitant]
  7. AMBIEN [Concomitant]

REACTIONS (11)
  - ABDOMINAL PAIN UPPER [None]
  - ANXIETY [None]
  - DIARRHOEA [None]
  - NASOPHARYNGITIS [None]
  - NAUSEA [None]
  - NIGHT SWEATS [None]
  - STEROID WITHDRAWAL SYNDROME [None]
  - TACHYCARDIA [None]
  - TREATMENT NONCOMPLIANCE [None]
  - VIRAL UPPER RESPIRATORY TRACT INFECTION [None]
  - VOMITING [None]
